FAERS Safety Report 8151205-8 (Version None)
Quarter: 2012Q1

REPORT INFORMATION
  Report Type: 
  Country: None (occurrence: None)
  Receive Date: 20120220
  Receipt Date: 20120210
  Transmission Date: 20120608
  Serious: Yes (Hospitalization)
  Sender: FDA-Public Use
  Company Number: US-ABBOTT-12P-163-0903983-00

PATIENT
  Sex: Male
  Weight: 68.1 kg

DRUGS (4)
  1. PREDNISONE [Concomitant]
     Indication: CROHN'S DISEASE
     Dates: start: 20120209, end: 20120210
  2. AZATHIOPRINE [Concomitant]
     Indication: CROHN'S DISEASE
  3. HUMIRA [Suspect]
     Indication: CROHN'S DISEASE
     Dosage: 160 MG LOADING DOSE
     Dates: start: 20120120, end: 20120120
  4. HUMIRA [Suspect]
     Dosage: 80 MG LOADING DOSE
     Dates: start: 20120203, end: 20120203

REACTIONS (11)
  - DECREASED APPETITE [None]
  - WEIGHT DECREASED [None]
  - HAEMOGLOBIN DECREASED [None]
  - HEART RATE INCREASED [None]
  - PYREXIA [None]
  - DIARRHOEA [None]
  - BLOOD IRON DECREASED [None]
  - FATIGUE [None]
  - CROHN'S DISEASE [None]
  - HAEMATOCRIT DECREASED [None]
  - HYPOTENSION [None]
